FAERS Safety Report 24719048 (Version 1)
Quarter: 2024Q4

REPORT INFORMATION
  Report Type: Spontaneous
  Country: GR (occurrence: EU)
  Receive Date: 20241210
  Receipt Date: 20241210
  Transmission Date: 20250115
  Serious: Yes (Hospitalization, Other)
  Sender: ASCENDIS PHARMA
  Company Number: GR-ASCENDIS PHARMA-2024EU007177

PATIENT

DRUGS (6)
  1. YORVIPATH [Suspect]
     Active Substance: PALOPEGTERIPARATIDE
     Indication: Post procedural hypoparathyroidism
     Dosage: 18 MICROGRAM, QD
     Route: 058
     Dates: start: 20241114
  2. YORVIPATH [Suspect]
     Active Substance: PALOPEGTERIPARATIDE
     Dosage: 21 MICROGRAM, QD
     Route: 058
     Dates: start: 20241122
  3. ALFACALCIDOL [Concomitant]
     Active Substance: ALFACALCIDOL
     Indication: Post procedural hypoparathyroidism
     Dosage: UNK
     Route: 065
  4. CALCIUM CARBONATE [Concomitant]
     Active Substance: CALCIUM CARBONATE
     Indication: Post procedural hypoparathyroidism
     Dosage: UNK
     Route: 065
  5. CALCIOFIX [Concomitant]
     Indication: Product used for unknown indication
     Dosage: UNK
     Route: 065
  6. LEVOTHYROXINE [Concomitant]
     Active Substance: LEVOTHYROXINE
     Indication: Product used for unknown indication

REACTIONS (6)
  - Hypocalcaemia [Recovering/Resolving]
  - Hypoaesthesia [Recovering/Resolving]
  - Hypoaesthesia [Recovering/Resolving]
  - Hypoaesthesia [Recovering/Resolving]
  - Product storage error [Recovered/Resolved]
  - Drug ineffective [Unknown]

NARRATIVE: CASE EVENT DATE: 20241119
